FAERS Safety Report 13006817 (Version 1)
Quarter: 2016Q4

REPORT INFORMATION
  Report Type: Spontaneous
  Country: JP (occurrence: JP)
  Receive Date: 20161207
  Receipt Date: 20161207
  Transmission Date: 20170207
  Serious: Yes (Other)
  Sender: FDA-Public Use
  Company Number: JP-GILEAD-2016-0223214

PATIENT
  Age: 63 Year
  Sex: Male

DRUGS (8)
  1. MYSLEE [Concomitant]
     Active Substance: ZOLPIDEM TARTRATE
  2. METHYCOBAL [Concomitant]
     Active Substance: METHYLCOBALAMIN
  3. HARVONI [Suspect]
     Active Substance: LEDIPASVIR\SOFOSBUVIR
     Indication: CHRONIC HEPATITIS C
     Dosage: 1 DF, UNK
     Route: 048
     Dates: start: 20150929, end: 20151222
  4. URSO [Concomitant]
     Active Substance: URSODIOL
  5. LOXONIN [Concomitant]
     Active Substance: LOXOPROFEN SODIUM
  6. CONSTAN                            /00384601/ [Concomitant]
  7. OLMETEC [Concomitant]
     Active Substance: OLMESARTAN MEDOXOMIL
  8. MUCOSTA [Concomitant]
     Active Substance: REBAMIPIDE

REACTIONS (1)
  - Oesophageal varices haemorrhage [Unknown]

NARRATIVE: CASE EVENT DATE: 20151009
